FAERS Safety Report 9707352 (Version 1)
Quarter: 2013Q4

REPORT INFORMATION
  Report Type: Spontaneous
  Country: US (occurrence: US)
  Receive Date: 20131125
  Receipt Date: 20131125
  Transmission Date: 20140711
  Serious: No
  Sender: FDA-Public Use
  Company Number: US-GLAXOSMITHKLINE-A1029103A

PATIENT
  Age: 55 Year
  Sex: Male

DRUGS (2)
  1. FLOVENT [Suspect]
     Indication: ASTHMA
     Dosage: 1PUFF TWICE PER DAY
     Route: 055
     Dates: start: 20130625
  2. VENTOLIN HFA [Concomitant]

REACTIONS (3)
  - Asthenia [Not Recovered/Not Resolved]
  - Wheezing [Unknown]
  - Drug ineffective [Unknown]
